FAERS Safety Report 18462661 (Version 1)
Quarter: 2020Q4

REPORT INFORMATION
  Report Type: Spontaneous
  Country: CN (occurrence: CN)
  Receive Date: 20201104
  Receipt Date: 20201104
  Transmission Date: 20210114
  Serious: Yes (Other)
  Sender: FDA-Public Use
  Company Number: CN-PFIZER INC-2020423867

PATIENT
  Age: 48 Year
  Sex: Female
  Weight: 40 kg

DRUGS (2)
  1. TYGACIL [Suspect]
     Active Substance: TIGECYCLINE
     Indication: SYMPTOMATIC TREATMENT
     Dosage: 50 MG, 2X/DAY
     Route: 041
     Dates: start: 20200914
  2. POLYMYXIN B SULFATE. [Suspect]
     Active Substance: POLYMYXIN B SULFATE
     Indication: SYMPTOMATIC TREATMENT
     Dosage: 50 IU, 2X/DAY
     Route: 041
     Dates: start: 20200917

REACTIONS (3)
  - Dysbiosis [Not Recovered/Not Resolved]
  - Diarrhoea [Not Recovered/Not Resolved]
  - Pseudomembranous colitis [Not Recovered/Not Resolved]

NARRATIVE: CASE EVENT DATE: 2020
